FAERS Safety Report 7074173-9 (Version None)
Quarter: 2010Q4

REPORT INFORMATION
  Report Type: 
  Country: None (occurrence: None)
  Receive Date: 20101029
  Receipt Date: 20101018
  Transmission Date: 20110411
  Serious: Yes (Hospitalization, Other)
  Sender: FDA-Public Use
  Company Number: US-ALLERGAN-0707781US

PATIENT
  Age: 63 Year
  Sex: Male
  Weight: 118.82 kg

DRUGS (11)
  1. BOTOX [Suspect]
     Indication: DYSTONIA
     Dosage: 235 UNITS, SINGLE
     Route: 030
     Dates: start: 20070717, end: 20070717
  2. BOTOX [Suspect]
     Dosage: 80 UNITS, SINGLE
     Route: 030
     Dates: start: 20070109, end: 20070109
  3. BOTOX [Suspect]
     Dosage: 220 UNITS, SINGLE
     Route: 030
     Dates: start: 20070403, end: 20070403
  4. BOTOX [Suspect]
     Dosage: 235 UNK, UNK
     Route: 030
     Dates: start: 20070515, end: 20070515
  5. LISINOPRIL [Concomitant]
     Indication: HYPERTENSION
     Dosage: 20 MG, QD
     Route: 048
  6. CODEINE W/PARACETAMOL [Concomitant]
     Indication: BACK PAIN
     Dosage: 30/300 MG PRN
     Route: 048
  7. NIACIN [Concomitant]
     Indication: DYSLIPIDAEMIA
     Dosage: 500 MG, QHS
     Route: 048
  8. SALSALATE [Concomitant]
     Indication: BACK PAIN
     Dosage: 750 MG, BID
     Route: 048
  9. VARDENAFIL HYDROCHLORIDE (LEVITRA) [Concomitant]
     Indication: ERECTILE DYSFUNCTION
     Dosage: 10 MG, 1 HOUR PRIOR TO ACTIVITY
     Route: 048
  10. ASPIRIN [Concomitant]
     Dosage: 81 MG, QD
     Route: 048
  11. MULTI-VITAMINS [Concomitant]
     Dosage: UNK
     Route: 048

REACTIONS (11)
  - ACUTE DISSEMINATED ENCEPHALOMYELITIS [None]
  - ATAXIA [None]
  - CHILLS [None]
  - CONVULSION [None]
  - DRUG HYPERSENSITIVITY [None]
  - MENTAL STATUS CHANGES [None]
  - PYREXIA [None]
  - RASH GENERALISED [None]
  - SOMNOLENCE [None]
  - URINARY INCONTINENCE [None]
  - VASCULAR DEMENTIA [None]
